FAERS Safety Report 17909937 (Version 3)
Quarter: 2020Q3

REPORT INFORMATION
  Report Type: Spontaneous
  Country: JP (occurrence: JP)
  Receive Date: 20200617
  Receipt Date: 20200924
  Transmission Date: 20201103
  Serious: Yes (Death, Life-Threatening, Other)
  Sender: FDA-Public Use
  Company Number: JP-ELI_LILLY_AND_COMPANY-JP202006005840

PATIENT
  Age: 2 Month
  Sex: Male
  Weight: 3.94 kg

DRUGS (14)
  1. DOPAMINE [Concomitant]
     Active Substance: DOPAMINE HYDROCHLORIDE
     Indication: PRODUCT USED FOR UNKNOWN INDICATION
     Dosage: UNK, UNKNOWN
     Route: 065
  2. EPOPROSTENOL. [Concomitant]
     Active Substance: EPOPROSTENOL
     Indication: PULMONARY ARTERIAL HYPERTENSION
     Dosage: UNK, UNKNOWN
     Route: 065
  3. SPIRONOLACTONE. [Concomitant]
     Active Substance: SPIRONOLACTONE
     Indication: PRODUCT USED FOR UNKNOWN INDICATION
     Dosage: 1 MG/KG, UNKNOWN
     Route: 065
  4. ADCIRCA [Suspect]
     Active Substance: TADALAFIL
     Dosage: 3.6 MG, DAILY
     Route: 048
     Dates: start: 20181106, end: 20181111
  5. DOBUTAMINE [Concomitant]
     Active Substance: DOBUTAMINE HYDROCHLORIDE
     Indication: PRODUCT USED FOR UNKNOWN INDICATION
     Dosage: UNK, UNKNOWN
     Route: 065
  6. NITRIC OXIDE. [Concomitant]
     Active Substance: NITRIC OXIDE
     Indication: PRODUCT USED FOR UNKNOWN INDICATION
     Dosage: UNK, UNKNOWN
     Route: 065
  7. ADCIRCA [Suspect]
     Active Substance: TADALAFIL
     Indication: PULMONARY ARTERIAL HYPERTENSION
     Dosage: 4 MG, DAILY
     Route: 048
     Dates: start: 20171213, end: 20171217
  8. VOLIBRIS [Concomitant]
     Active Substance: AMBRISENTAN
     Indication: PULMONARY ARTERIAL HYPERTENSION
     Dosage: 0.4 MG, DAILY
     Route: 065
     Dates: start: 20171213, end: 20171215
  9. OLPRINONE [Concomitant]
     Active Substance: OLPRINONE HYDROCHLORIDE
     Indication: PRODUCT USED FOR UNKNOWN INDICATION
     Dosage: UNK, UNKNOWN
     Route: 065
  10. REVATIO [Concomitant]
     Active Substance: SILDENAFIL CITRATE
     Indication: PRODUCT USED FOR UNKNOWN INDICATION
  11. VOLIBRIS [Concomitant]
     Active Substance: AMBRISENTAN
     Dosage: 0.4 MG, DAILY
     Route: 065
     Dates: start: 20180828, end: 20180830
  12. ADCIRCA [Suspect]
     Active Substance: TADALAFIL
     Dosage: 1.8 MG, DAILY
     Route: 048
     Dates: start: 20180731, end: 20180806
  13. ADCIRCA [Suspect]
     Active Substance: TADALAFIL
     Dosage: 3.6 MG, DAILY
     Route: 048
     Dates: start: 20180807, end: 20181103
  14. FUROSEMIDE. [Concomitant]
     Active Substance: FUROSEMIDE
     Indication: PRODUCT USED FOR UNKNOWN INDICATION
     Dosage: 1 MG/KG, UNKNOWN
     Route: 065

REACTIONS (12)
  - Pulmonary oedema [Recovering/Resolving]
  - Pulmonary oedema [Recovering/Resolving]
  - Oedema [Recovering/Resolving]
  - Oedema [Recovering/Resolving]
  - Pulmonary congestion [Recovering/Resolving]
  - Oedema [Recovering/Resolving]
  - Pulmonary oedema [Recovering/Resolving]
  - Oedema [Recovering/Resolving]
  - Oedema [Fatal]
  - Pulmonary oedema [Recovering/Resolving]
  - Oedema [Recovering/Resolving]
  - Pulmonary oedema [Fatal]

NARRATIVE: CASE EVENT DATE: 20171213
